FAERS Safety Report 18555434 (Version 1)
Quarter: 2020Q4

REPORT INFORMATION
  Report Type: Spontaneous
  Country: FR (occurrence: FR)
  Receive Date: 20201127
  Receipt Date: 20201127
  Transmission Date: 20210114
  Serious: Yes (Life-Threatening)
  Sender: FDA-Public Use
  Company Number: FR-BAUSCH-BL-2020-033863

PATIENT
  Age: 44 Year
  Sex: Male

DRUGS (6)
  1. TERALITHE [Concomitant]
     Active Substance: LITHIUM CARBONATE
     Indication: BIPOLAR I DISORDER
     Dosage: EXTENDED-RELEASE SCORED TABLET
     Route: 048
     Dates: start: 2019, end: 20201024
  2. DIAZEPAM. [Suspect]
     Active Substance: DIAZEPAM
     Indication: BIPOLAR I DISORDER
     Route: 048
     Dates: start: 20201014, end: 20201024
  3. TERCIAN [Suspect]
     Active Substance: CYAMEMAZINE
     Indication: BIPOLAR I DISORDER
     Dosage: SCORED COATED TABLET
     Route: 048
     Dates: start: 20201021, end: 20201024
  4. OLANZAPINE. [Suspect]
     Active Substance: OLANZAPINE
     Indication: BIPOLAR I DISORDER
     Route: 048
     Dates: start: 20201014, end: 20201024
  5. DEPAKOTE [Concomitant]
     Active Substance: DIVALPROEX SODIUM
     Indication: BIPOLAR I DISORDER
     Route: 048
     Dates: start: 2019, end: 20201024
  6. TERCIAN [Suspect]
     Active Substance: CYAMEMAZINE
     Indication: BIPOLAR I DISORDER
     Dosage: SCORED COATED TABLET
     Route: 048
     Dates: start: 20201021, end: 20201024

REACTIONS (5)
  - Metabolic acidosis [Recovered/Resolved]
  - Constipation [Recovered/Resolved]
  - Intestinal obstruction [Recovered/Resolved]
  - Hypovolaemic shock [Recovered/Resolved]
  - Acute kidney injury [Recovering/Resolving]

NARRATIVE: CASE EVENT DATE: 20201024
